FAERS Safety Report 10329002 (Version 4)
Quarter: 2014Q3

REPORT INFORMATION
  Report Type: Report from Study
  Country: KR (occurrence: KR)
  Receive Date: 20140721
  Receipt Date: 20140812
  Transmission Date: 20150326
  Serious: Yes (Death)
  Sender: FDA-Public Use
  Company Number: KR-BAYER-2014-091633

PATIENT
  Age: 54 Year
  Sex: Male

DRUGS (8)
  1. DUPHALAC [Concomitant]
     Active Substance: LACTULOSE
     Indication: ALTERED STATE OF CONSCIOUSNESS
     Dosage: TOTAL DAILY DOSE 60ML
     Route: 048
     Dates: start: 20140619, end: 20140623
  2. REGORAFENIB [Suspect]
     Active Substance: REGORAFENIB
     Indication: GASTROINTESTINAL STROMAL TUMOUR
     Dosage: 160 MG/DAY (3 WEEKS OF INTAKE, 1 WEEK OF REST)
     Route: 048
     Dates: start: 20130711
  3. REGORAFENIB [Suspect]
     Active Substance: REGORAFENIB
     Indication: GASTROINTESTINAL STROMAL TUMOUR
     Dosage: 120 MG/DAY, CYCLE 13
     Route: 048
     Dates: start: 20140611, end: 20140614
  4. MACROGOL [Concomitant]
     Active Substance: POLYETHYLENE GLYCOLS
     Indication: CONSTIPATION
  5. REGORAFENIB [Suspect]
     Active Substance: REGORAFENIB
     Indication: GASTROINTESTINAL STROMAL TUMOUR
     Dosage: 120 MG/DAY
     Route: 048
  6. REGORAFENIB [Suspect]
     Active Substance: REGORAFENIB
     Indication: GASTROINTESTINAL STROMAL TUMOUR
     Dosage: 160 MG/DAY
     Route: 048
  7. MAGNESIUM OXIDE. [Concomitant]
     Active Substance: MAGNESIUM OXIDE
     Indication: CONSTIPATION
  8. DULCOLAX [BISACODYL] [Concomitant]
     Indication: CONSTIPATION

REACTIONS (1)
  - Altered state of consciousness [Fatal]

NARRATIVE: CASE EVENT DATE: 20140615
